FAERS Safety Report 4303475-1 (Version None)
Quarter: 2004Q1

REPORT INFORMATION
  Report Type: 
  Country: None (occurrence: None)
  Receive Date: 20040223
  Receipt Date: 20040119
  Transmission Date: 20041129
  Serious: Yes (Hospitalization, Other)
  Sender: FDA-Public Use
  Company Number: 2003039441

PATIENT
  Sex: Male
  Weight: 97.0698 kg

DRUGS (10)
  1. DILANTIN KAPSEAL [Suspect]
     Indication: CONVULSION
     Dosage: 400 MG (BID), ORAL
     Route: 048
  2. PHENYTOIN [Suspect]
     Indication: ILL-DEFINED DISORDER
  3. WARFARIN SODIUM [Concomitant]
  4. ATQRVASTAT1N (ATORVASTATIN) [Concomitant]
  5. RANITIDINE HYDROCHLORIDE [Concomitant]
  6. CITALOPRAM HYDROBROMIDE (CITALOPRAM HYDROBROMIDE) [Concomitant]
  7. METOPROLOL TARTRATE [Concomitant]
  8. DOCUSATE SODIUM (DOCUSATE SODIUM) [Concomitant]
  9. CLOPIDOGREL BISULFATE [Concomitant]
  10. SENNA FRUIT (SENNA FRUIT) [Concomitant]

REACTIONS (7)
  - CONVULSION [None]
  - DRUG LEVEL ABOVE THERAPEUTIC [None]
  - DRUG LEVEL BELOW THERAPEUTIC [None]
  - HEADACHE [None]
  - MYOCARDIAL INFARCTION [None]
  - PHARMACEUTICAL PRODUCT COMPLAINT [None]
  - REFUSAL OF TREATMENT BY PATIENT [None]
